FAERS Safety Report 4367036-0 (Version None)
Quarter: 2004Q2

REPORT INFORMATION
  Report Type: 
  Country: None (occurrence: None)
  Receive Date: 20040524
  Receipt Date: 20040507
  Transmission Date: 20050107
  Serious: No
  Sender: FDA-Public Use
  Company Number: 28236

PATIENT
  Age: 83 Year
  Sex: Female
  Weight: 40.3701 kg

DRUGS (3)
  1. MIOSTAT [Suspect]
     Dates: start: 20040322
  2. SYNTHROID [Concomitant]
  3. FOSAMAX [Concomitant]

REACTIONS (5)
  - ANTERIOR CHAMBER DISORDER [None]
  - INFLAMMATION [None]
  - POST PROCEDURAL COMPLICATION [None]
  - THROMBOSIS [None]
  - VISUAL ACUITY REDUCED [None]
